FAERS Safety Report 6274921-1 (Version None)
Quarter: 2009Q3

REPORT INFORMATION
  Report Type: 
  Country: None (occurrence: None)
  Receive Date: 20090721
  Receipt Date: 20090706
  Transmission Date: 20100115
  Serious: Yes (Other)
  Sender: FDA-Public Use
  Company Number: US-JNJFOC-20090701816

PATIENT

DRUGS (1)
  1. INFLIXIMAB [Suspect]
     Indication: PSORIASIS
     Dosage: WEEKS 1, 2, 6, AND THEN EVERY 8 WEEKS
     Route: 042

REACTIONS (1)
  - BASAL CELL CARCINOMA [None]
